FAERS Safety Report 17722217 (Version 2)
Quarter: 2020Q2

REPORT INFORMATION
  Report Type: Report from Study
  Country: None (occurrence: US)
  Receive Date: 20200429
  Receipt Date: 20200525
  Transmission Date: 20200714
  Serious: Yes (Other)
  Sender: FDA-Public Use
  Company Number: US-ABBVIE-20K-163-3297375-00

PATIENT
  Sex: Male
  Weight: 108.96 kg

DRUGS (11)
  1. DONEPEZIL HCL [Concomitant]
     Active Substance: DONEPEZIL HYDROCHLORIDE
     Indication: CRANIOCEREBRAL INJURY
  2. CLONIDINE. [Concomitant]
     Active Substance: CLONIDINE
     Indication: CRANIOCEREBRAL INJURY
  3. HUMIRA [Suspect]
     Active Substance: ADALIMUMAB
     Indication: PSORIATIC ARTHROPATHY
     Route: 058
     Dates: start: 2019
  4. HUMIRA [Suspect]
     Active Substance: ADALIMUMAB
     Indication: RHEUMATOID ARTHRITIS
  5. GRALISE [Concomitant]
     Active Substance: GABAPENTIN
     Indication: CRANIOCEREBRAL INJURY
  6. DULOXETINE. [Concomitant]
     Active Substance: DULOXETINE
     Indication: CRANIOCEREBRAL INJURY
  7. BENZTROPINE. [Concomitant]
     Active Substance: BENZTROPINE
     Indication: CRANIOCEREBRAL INJURY
  8. MEMANTINE. [Concomitant]
     Active Substance: MEMANTINE
     Indication: CRANIOCEREBRAL INJURY
  9. SEROQUEL [Concomitant]
     Active Substance: QUETIAPINE FUMARATE
     Indication: CRANIOCEREBRAL INJURY
  10. DEXTROAMPHETAMINE. [Concomitant]
     Active Substance: DEXTROAMPHETAMINE
     Indication: CRANIOCEREBRAL INJURY
  11. QUETIAPINE FUMARATE. [Concomitant]
     Active Substance: QUETIAPINE FUMARATE
     Indication: CRANIOCEREBRAL INJURY

REACTIONS (1)
  - Osteoarthritis [Not Recovered/Not Resolved]

NARRATIVE: CASE EVENT DATE: 2019
